FAERS Safety Report 17711435 (Version 2)
Quarter: 2020Q2

REPORT INFORMATION
  Report Type: Spontaneous
  Country: US (occurrence: US)
  Receive Date: 20200427
  Receipt Date: 20200429
  Transmission Date: 20200714
  Serious: No
  Sender: FDA-Public Use
  Company Number: US-PFIZER INC-2020168843

PATIENT
  Age: 65 Year
  Sex: Female
  Weight: 65.8 kg

DRUGS (2)
  1. XELJANZ XR [Suspect]
     Active Substance: TOFACITINIB CITRATE
     Indication: RHEUMATOID ARTHRITIS
     Dosage: 11 MG, 1X/DAY
     Route: 048
     Dates: start: 201804
  2. MOBIC [Suspect]
     Active Substance: MELOXICAM
     Indication: INFLAMMATORY PAIN
     Dosage: UNK

REACTIONS (3)
  - Herpes zoster [Recovered/Resolved]
  - Constipation [Unknown]
  - Weight increased [Unknown]

NARRATIVE: CASE EVENT DATE: 2019
